FAERS Safety Report 7378804-5 (Version None)
Quarter: 2011Q1

REPORT INFORMATION
  Report Type: 
  Country: None (occurrence: None)
  Receive Date: 20110328
  Receipt Date: 20110314
  Transmission Date: 20110831
  Serious: Yes (Other)
  Sender: FDA-Public Use
  Company Number: PHHY2010US89680

PATIENT
  Sex: Female

DRUGS (3)
  1. RECLAST [Suspect]
     Dosage: 5 MG
     Route: 042
     Dates: start: 20100801
  2. CORTISONE [Concomitant]
  3. VOLTAREN [Concomitant]

REACTIONS (25)
  - GAIT DISTURBANCE [None]
  - BACK PAIN [None]
  - PARAESTHESIA [None]
  - MUSCULOSKELETAL STIFFNESS [None]
  - PAIN IN EXTREMITY [None]
  - JOINT CREPITATION [None]
  - OEDEMA PERIPHERAL [None]
  - MUSCLE SPASMS [None]
  - INSOMNIA [None]
  - PAIN [None]
  - INFLUENZA LIKE ILLNESS [None]
  - BURSITIS [None]
  - MUSCULOSKELETAL PAIN [None]
  - MUSCULOSKELETAL DISCOMFORT [None]
  - NEURALGIA [None]
  - MOVEMENT DISORDER [None]
  - JOINT SWELLING [None]
  - HYPOAESTHESIA [None]
  - HEADACHE [None]
  - FATIGUE [None]
  - BONE PAIN [None]
  - NECK PAIN [None]
  - UPPER EXTREMITY MASS [None]
  - ASTHENIA [None]
  - ARTHRALGIA [None]
